FAERS Safety Report 17328621 (Version 1)
Quarter: 2020Q1

REPORT INFORMATION
  Report Type: Report from Study
  Country: IL (occurrence: IL)
  Receive Date: 20200127
  Receipt Date: 20200127
  Transmission Date: 20200409
  Serious: Yes (Hospitalization)
  Sender: FDA-Public Use
  Company Number: IL-PFIZER INC-2020034823

PATIENT
  Age: 26 Year
  Sex: Female

DRUGS (11)
  1. IRINOTECAN HCL [Suspect]
     Active Substance: IRINOTECAN HYDROCHLORIDE
     Indication: COLORECTAL CANCER METASTATIC
     Dosage: 279 MG, EVERY 2 WEEKS
     Route: 042
     Dates: start: 20190303, end: 20190610
  2. 5-FLUOROURACIL [FLUOROURACIL] [Suspect]
     Active Substance: FLUOROURACIL
     Dosage: 619 MG, EVERY 2 WEEKS
     Route: 040
     Dates: start: 20190303, end: 20190610
  3. BEVACIZUMAB. [Suspect]
     Active Substance: BEVACIZUMAB
     Indication: COLORECTAL CANCER METASTATIC
     Dosage: 266 MG, EVERY 2 WEEKS
     Route: 042
     Dates: start: 20190324, end: 20190527
  4. BEVACIZUMAB. [Suspect]
     Active Substance: BEVACIZUMAB
     Dosage: 238 MG, EVERY 2 WEEKS
     Route: 042
     Dates: start: 20190610, end: 20190610
  5. NEULASTIM [Concomitant]
     Active Substance: PEGFILGRASTIM
     Dosage: UNK
     Dates: start: 20190324
  6. PRAMINAL [METOCLOPRAMIDE HYDROCHLORIDE] [Concomitant]
     Dosage: UNK
     Dates: start: 20190324
  7. 5-FLUOROURACIL [FLUOROURACIL] [Suspect]
     Active Substance: FLUOROURACIL
     Indication: COLORECTAL CANCER METASTATIC
     Dosage: 3715 MG, INFUSION, EVERY 2 WEEKS
     Route: 042
     Dates: start: 20190303, end: 20190610
  8. BBI 608 [Suspect]
     Active Substance: NAPABUCASIN
     Indication: COLORECTAL CANCER METASTATIC
     Dosage: 240 MG, 2X/DAY
     Route: 048
     Dates: start: 20190227, end: 20190620
  9. IMODIUM [Concomitant]
     Active Substance: LOPERAMIDE HYDROCHLORIDE
     Dosage: UNK
     Dates: start: 20190227
  10. LEUCOVORIN [CALCIUM FOLINATE] [Suspect]
     Active Substance: LEUCOVORIN
     Indication: COLORECTAL CANCER METASTATIC
     Dosage: 619 MG, EVERY 2 WEEKS
     Route: 042
     Dates: start: 20190303, end: 20190610
  11. DECAPEPTYL [GONADORELIN] [Concomitant]
     Active Substance: GONADORELIN
     Dosage: UNK
     Dates: start: 2018

REACTIONS (1)
  - Herpes zoster [Recovered/Resolved]

NARRATIVE: CASE EVENT DATE: 20190620
